FAERS Safety Report 7941118-6 (Version None)
Quarter: 2011Q4

REPORT INFORMATION
  Report Type: 
  Country: None (occurrence: None)
  Receive Date: 20111128
  Receipt Date: 20111123
  Transmission Date: 20120403
  Serious: Yes (Hospitalization)
  Sender: FDA-Public Use
  Company Number: US-BRACCO-006763

PATIENT
  Age: 73 Year
  Sex: Female
  Weight: 98 kg

DRUGS (23)
  1. FUROSEMIDE [Concomitant]
     Dates: start: 20080911
  2. HEPARIN [Concomitant]
     Dosage: PRE AND DURING THE PROCEDURE
     Dates: start: 20110804, end: 20110804
  3. ISOVUE-370 [Suspect]
     Indication: ANGIOGRAM
     Dosage: ADMINISTERED FROM15:33 TO 16:46
     Route: 013
     Dates: start: 20110804, end: 20110804
  4. ASPIRIN [Concomitant]
     Dosage: PRIOR TO RANDOMIZATION
     Dates: start: 20110804
  5. ASPIRIN [Concomitant]
     Dosage: POST PROCEDURE
     Dates: start: 20110805, end: 20110807
  6. FOSAMAX [Concomitant]
     Dates: start: 20070817
  7. KLOR-CON [Concomitant]
     Dates: start: 20090911
  8. CELEBREX [Concomitant]
     Dates: start: 20070817
  9. ALL OTHER THERAPEUTIC PRODUCTS [Suspect]
     Indication: PERCUTANEOUS CORONARY INTERVENTION
     Dosage: REGIMEN # 1 (BLINDED)
     Dates: start: 20110804, end: 20110804
  10. ALL OTHER THERAPEUTIC PRODUCTS [Suspect]
     Dosage: REGIMEN # 2 (BLINDED)
     Dates: start: 20110804, end: 20110804
  11. VITAMIN B-12 [Concomitant]
     Dates: start: 20060109
  12. ALL OTHER THERAPEUTIC PRODUCTS [Suspect]
     Dosage: REGIMEN # 3 (BLINDED)
     Dates: start: 20110804, end: 20110804
  13. ASPIRIN [Concomitant]
     Dosage: AT DISCHARGE
  14. DIOVAN [Concomitant]
     Dates: start: 20110119
  15. GLYBURIDE [Concomitant]
     Dates: start: 20070817
  16. HEPARIN [Concomitant]
     Dosage: POST PROCEDURE
     Dates: start: 20110804, end: 20110806
  17. ALL OTHER THERAPEUTIC PRODUCTS [Suspect]
     Dosage: REGIMEN # 4 (BLINDED)
     Dates: start: 20110804, end: 20110804
  18. CLOPIDOGREL [Concomitant]
     Dosage: AT DISCHARGE
  19. CLOPIDOGREL [Concomitant]
     Dates: start: 20110805, end: 20110807
  20. ROSUVASTATIN [Concomitant]
     Dates: start: 20070817
  21. SIMVASTATIN [Concomitant]
     Dates: start: 20101019
  22. CLOPIDOGREL [Concomitant]
     Dosage: POST PROCEDURE
     Dates: start: 20110804
  23. METFORMIN HCL [Concomitant]
     Dates: start: 20070817

REACTIONS (1)
  - RENAL FAILURE ACUTE [None]
